FAERS Safety Report 22790453 (Version 5)
Quarter: 2023Q4

REPORT INFORMATION
  Report Type: Report from Study
  Country: US (occurrence: US)
  Receive Date: 20230805
  Receipt Date: 20231204
  Transmission Date: 20240110
  Serious: Yes (Other)
  Sender: FDA-Public Use
  Company Number: US-002147023-NVSC2023US169345

PATIENT

DRUGS (1)
  1. KESIMPTA [Suspect]
     Active Substance: OFATUMUMAB
     Indication: Multiple sclerosis
     Dosage: UNK
     Route: 065

REACTIONS (10)
  - Multiple sclerosis [Not Recovered/Not Resolved]
  - Myalgia [Recovered/Resolved]
  - Muscle fatigue [Recovered/Resolved]
  - Headache [Recovered/Resolved]
  - Fatigue [Recovered/Resolved]
  - Hyperhidrosis [Recovered/Resolved]
  - Abdominal distension [Unknown]
  - Dysphagia [Recovered/Resolved]
  - Arthralgia [Unknown]
  - Alanine aminotransferase increased [Unknown]
